FAERS Safety Report 11150988 (Version 1)
Quarter: 2015Q2

REPORT INFORMATION
  Report Type: Report from Study
  Country: US (occurrence: None)
  Receive Date: 20150528
  Receipt Date: 20150528
  Transmission Date: 20150821
  Serious: Yes (Hospitalization, Other)
  Sender: FDA-Public Use
  Company Number: 2014SGN01601

PATIENT
  Age: 68 Year
  Sex: Male
  Weight: 79.5 kg

DRUGS (6)
  1. DOXORUBICIN (DOXORUBICIN) INJECTION [Suspect]
     Active Substance: DOXORUBICIN
     Indication: DIFFUSE LARGE B-CELL LYMPHOMA
     Route: 042
     Dates: start: 20140220, end: 20140604
  2. VINCRISTINE (VINCRISTINE) INJECTION [Suspect]
     Active Substance: VINCRISTINE
     Indication: DIFFUSE LARGE B-CELL LYMPHOMA
     Route: 042
     Dates: start: 20140220, end: 20140604
  3. RITUXIMAB (RITUXIMAB) INJECTION [Suspect]
     Active Substance: RITUXIMAB
     Indication: DIFFUSE LARGE B-CELL LYMPHOMA
     Route: 042
     Dates: start: 20140220, end: 20140604
  4. CYCLOPHOSPHAMIDE (CYCLOPHOSPHAMIDE) INJECTION [Suspect]
     Active Substance: CYCLOPHOSPHAMIDE
     Indication: DIFFUSE LARGE B-CELL LYMPHOMA
     Route: 042
     Dates: start: 20140220, end: 20140604
  5. PREDNISONE (PREDNISONE) ORAL [Suspect]
     Active Substance: PREDNISONE
     Indication: DIFFUSE LARGE B-CELL LYMPHOMA
     Route: 048
     Dates: start: 20140220, end: 20140608
  6. BRENTUXIMAB VEDOTIN (BRENTUXIMAB VEDOTIN) INJECTION [Suspect]
     Active Substance: BRENTUXIMAB VEDOTIN
     Indication: DIFFUSE LARGE B-CELL LYMPHOMA
     Route: 042
     Dates: start: 20140220, end: 20140604

REACTIONS (2)
  - Central nervous system lymphoma [None]
  - Metastases to central nervous system [None]

NARRATIVE: CASE EVENT DATE: 20141126
